FAERS Safety Report 22317989 (Version 2)
Quarter: 2023Q2

REPORT INFORMATION
  Report Type: Spontaneous
  Country: PT (occurrence: PT)
  Receive Date: 20230515
  Receipt Date: 20230523
  Transmission Date: 20230722
  Serious: Yes (Other)
  Sender: FDA-Public Use
  Company Number: PT-ALKEM LABORATORIES LIMITED-PT-ALKEM-2023-05079

PATIENT
  Age: 53 Year
  Sex: Female
  Weight: 37 kg

DRUGS (3)
  1. LIDOCAINE [Suspect]
     Active Substance: LIDOCAINE
     Indication: Local anaesthesia
     Dosage: UNK (INITIALLY ONE AMPOULE 20 ML OF LIDOCAINE WAS ADMINISTERED (TOTAL 200 MG)
     Route: 058
  2. LIDOCAINE [Suspect]
     Active Substance: LIDOCAINE
     Dosage: UNK (3 LIDOCAINE 20 ML AMPOULES, GIVING A TOTAL OF 600 MG) (TOTAL DOSE OF 60 ML)
     Route: 058
  3. MIDAZOLAM [Concomitant]
     Active Substance: MIDAZOLAM
     Indication: Product used for unknown indication
     Dosage: 2 MILLIGRAM
     Route: 065

REACTIONS (1)
  - Local anaesthetic systemic toxicity [Recovering/Resolving]
